FAERS Safety Report 8249789-4 (Version None)
Quarter: 2012Q2

REPORT INFORMATION
  Report Type: 
  Country: None (occurrence: None)
  Receive Date: 20120402
  Receipt Date: 20120323
  Transmission Date: 20120825
  Serious: Yes (Hospitalization)
  Sender: FDA-Public Use
  Company Number: PHHY2012TR025857

PATIENT
  Age: 65 Year
  Sex: Male

DRUGS (2)
  1. STALEVO 100 [Suspect]
     Dosage: UNKNOWN
     Route: 048
  2. STALEVO 100 [Suspect]
     Dosage: 75 G, ONCE/SINGLE
     Route: 048

REACTIONS (3)
  - SUICIDE ATTEMPT [None]
  - OVERDOSE [None]
  - DYSKINESIA [None]
